FAERS Safety Report 6860250-1 (Version None)
Quarter: 2010Q3

REPORT INFORMATION
  Report Type: 
  Country: None (occurrence: None)
  Receive Date: 20100720
  Receipt Date: 20100707
  Transmission Date: 20110219
  Serious: Yes (Hospitalization)
  Sender: FDA-Public Use
  Company Number: PHHY2010US44611

PATIENT
  Sex: Female

DRUGS (2)
  1. TEKTURNA [Suspect]
     Indication: HYPERTENSION
     Dosage: ONCE DAILY
     Route: 048
  2. DIOVAN [Suspect]
     Indication: HYPERTENSION
     Dosage: ONCE DAILY
     Route: 048

REACTIONS (2)
  - DIZZINESS [None]
  - SYNCOPE [None]
